FAERS Safety Report 4484552-1 (Version None)
Quarter: 2004Q3

REPORT INFORMATION
  Report Type: 
  Country: None (occurrence: None)
  Receive Date: 20040921
  Receipt Date: 20031126
  Transmission Date: 20050211
  Serious: Yes (Hospitalization)
  Sender: FDA-Public Use
  Company Number: 163-20785-03120016(0)

PATIENT
  Age: 65 Year
  Sex: Female

DRUGS (15)
  1. THALOMID [Suspect]
     Indication: MULTIPLE MYELOMA
     Dosage: 100 MG, DAILY, ORAL
     Route: 048
     Dates: start: 20030203, end: 20030312
  2. VINCRISTINE [Suspect]
     Indication: MULTIPLE MYELOMA
     Dosage: INTRAVENOUS
     Route: 042
     Dates: start: 20030210, end: 20030320
  3. ADRIAMYCIN PFS [Suspect]
     Indication: MULTIPLE MYELOMA
     Dosage: INTRAVENOUS
     Route: 042
     Dates: start: 20030210, end: 20030320
  4. DEXAMETHASONE (DEXMETHASONE) (UNKNOWN) [Suspect]
     Indication: MULTIPLE MYELOMA
     Dosage: 40 MG, DAILY, ORAL
     Route: 048
     Dates: start: 20030210, end: 20030329
  5. PROTONIX [Concomitant]
  6. FOLIC ACID [Concomitant]
  7. COUMADIN [Concomitant]
  8. COLACE (DOCUSATE SODIUM) (TABLETS) [Concomitant]
  9. NEURONTIN [Concomitant]
  10. VITAMIN B6 [Concomitant]
  11. VITAMIN B12 [Concomitant]
  12. PAXIL [Concomitant]
  13. CALTRATE (CALCIUM CARBONATE) (TABLETS) [Concomitant]
  14. BECONASE (BECLOMETASONE DIPROPIONATE) (INHALATION) [Concomitant]
  15. LASIX [Concomitant]

REACTIONS (5)
  - COUGH [None]
  - DYSPNOEA [None]
  - HAEMOGLOBIN DECREASED [None]
  - PNEUMONIA [None]
  - PULMONARY HYPERTENSION [None]
